FAERS Safety Report 14518743 (Version 1)
Quarter: 2018Q1

REPORT INFORMATION
  Report Type: Spontaneous
  Country: US (occurrence: US)
  Receive Date: 20180209
  Receipt Date: 20180209
  Transmission Date: 20180509
  Serious: No
  Sender: FDA-Public Use
  Company Number: None

PATIENT
  Age: 32 Year
  Sex: Female
  Weight: 86.85 kg

DRUGS (2)
  1. IC ZOLPIDEM TARTRATE 10 MG TABLET [Suspect]
     Active Substance: ZOLPIDEM TARTRATE
     Indication: INSOMNIA
     Dosage: ?          QUANTITY:30 TABLET(S);?
     Route: 048
     Dates: start: 20180208, end: 20180208
  2. DOXYCYCLINE HYCLATE. [Concomitant]
     Active Substance: DOXYCYCLINE HYCLATE

REACTIONS (6)
  - Initial insomnia [None]
  - Nausea [None]
  - Anxiety [None]
  - Dyspepsia [None]
  - Palpitations [None]
  - Panic attack [None]

NARRATIVE: CASE EVENT DATE: 20180208
